FAERS Safety Report 5276575-X (Version None)
Quarter: 2007Q1

REPORT INFORMATION
  Report Type: 
  Country: None (occurrence: None)
  Receive Date: 20070327
  Receipt Date: 20070315
  Transmission Date: 20070707
  Serious: Yes (Other)
  Sender: FDA-Public Use
  Company Number: FR-JNJFOC-20070304383

PATIENT
  Age: 57 Year
  Sex: Male

DRUGS (4)
  1. REMICADE [Suspect]
     Route: 042
  2. REMICADE [Suspect]
     Indication: PSORIASIS
     Route: 042
  3. PERFALGAN [Concomitant]
     Indication: PREMEDICATION
     Route: 042
  4. POLARAMINE [Concomitant]
     Indication: PREMEDICATION
     Route: 042

REACTIONS (7)
  - COUGH [None]
  - FORMICATION [None]
  - HYPERHIDROSIS [None]
  - HYPOTENSION [None]
  - INFUSION RELATED REACTION [None]
  - MALAISE [None]
  - PHARYNGOLARYNGEAL PAIN [None]
